FAERS Safety Report 8899582 (Version 1)
Quarter: 2012Q4

REPORT INFORMATION
  Report Type: 
  Country: US (occurrence: US)
  Receive Date: 20121108
  Receipt Date: 20121108
  Transmission Date: 20130627
  Serious: No
  Sender: FDA-Public Use
  Company Number: US-AMGEN-USASP2012035888

PATIENT
  Age: 63 Year
  Sex: Female
  Weight: 81.63 kg

DRUGS (14)
  1. ENBREL [Suspect]
     Indication: PRODUCT USED FOR UNKNOWN INDICATION
     Dosage: 50 mg, qwk
     Route: 058
  2. LEVOTHROID [Concomitant]
     Dosage: 100 mug, UNK
  3. METFORMIN [Concomitant]
     Dosage: 60 mg, UNK
  4. CARDIZEM                           /00489701/ [Concomitant]
     Dosage: 60 mg, UNK
  5. TRAMADOL HCL [Concomitant]
     Dosage: 50 mg, UNK
  6. NEXIUM                             /01479302/ [Concomitant]
     Dosage: 20 mg, UNK
  7. CRESTOR [Concomitant]
     Dosage: 5 mg, UNK
  8. CELEBREX [Concomitant]
     Dosage: 50 mg, UNK
  9. COZAAR [Concomitant]
     Dosage: 50 mg, UNK
  10. PULMICORT [Concomitant]
     Dosage: 180 mug, UNK
  11. NASONEX [Concomitant]
     Dosage: 50 mug, UNK
  12. BABY ASPIRIN [Concomitant]
     Dosage: 81 mg, UNK
  13. ZYRTEC-D [Concomitant]
     Dosage: 120 mg, UNK
  14. STOOL SOFTENER [Concomitant]
     Dosage: 240 mg, UNK

REACTIONS (3)
  - Injection site pain [Recovered/Resolved]
  - Injection site pruritus [Recovered/Resolved]
  - Injection site erythema [Recovered/Resolved]
